FAERS Safety Report 16684435 (Version 9)
Quarter: 2020Q2

REPORT INFORMATION
  Report Type: Report from Study
  Country: NL (occurrence: NL)
  Receive Date: 20190808
  Receipt Date: 20200406
  Transmission Date: 20200713
  Serious: Yes (Death, Life-Threatening, Hospitalization, Other)
  Sender: FDA-Public Use
  Company Number: NL-GILEAD-2019-0420611

PATIENT
  Age: 58 Year
  Sex: Male
  Weight: 88.5 kg

DRUGS (48)
  1. OXYCODON [Concomitant]
     Active Substance: OXYCODONE
     Dosage: 10,MG,TWICE DAILY
     Route: 048
     Dates: start: 20190730
  2. MOVICOLON [Concomitant]
     Active Substance: POLYETHYLENE GLYCOL 3350\POTASSIUM CHLORIDE\SODIUM BICARBONATE\SODIUM CHLORIDE
     Dosage: 1,OTHER,AS NECESSARY
     Route: 048
     Dates: start: 20190724, end: 20190807
  3. PARACETAMOL [Concomitant]
     Active Substance: ACETAMINOPHEN
     Dosage: 1000,MG,ONCE
     Route: 048
     Dates: start: 20190718, end: 20190718
  4. LACTULOSE. [Concomitant]
     Active Substance: LACTULOSE
     Dosage: 15,ML,AS NECESSARY
     Route: 048
     Dates: start: 20190718, end: 20190723
  5. MIDAZOLAM. [Concomitant]
     Active Substance: MIDAZOLAM
     Dosage: 1,OTHER,AS NECESSARY
     Route: 045
     Dates: start: 20190717, end: 20190807
  6. CLEMASTINE [Concomitant]
     Active Substance: CLEMASTINE
     Dosage: 2,MG,ONCE
     Route: 042
     Dates: start: 20190718, end: 20190718
  7. CALCIUM GLUCONATE. [Concomitant]
     Active Substance: CALCIUM GLUCONATE
     Dosage: UN,OTHER,CONTINUOUS
     Route: 042
     Dates: start: 20190713, end: 20190713
  8. OXYGEN. [Concomitant]
     Active Substance: OXYGEN
     Dosage: 5,L/MIN,CONTINUOUS
     Route: 045
     Dates: start: 20190722, end: 20190726
  9. OXYCODON [Concomitant]
     Active Substance: OXYCODONE
     Dosage: 5,MG,AS NECESSARY
     Route: 048
     Dates: start: 20190711, end: 20190723
  10. COTRIMOXAZOL [Concomitant]
     Active Substance: SULFAMETHOXAZOLE\TRIMETHOPRIM
     Dosage: 480,MG,DAILY
     Route: 048
     Dates: start: 20190711
  11. VALACICLOVIR [Concomitant]
     Active Substance: VALACYCLOVIR HYDROCHLORIDE
     Dosage: 500,MG,TWICE DAILY
     Route: 048
     Dates: start: 20190731
  12. PARACETAMOL [Concomitant]
     Active Substance: ACETAMINOPHEN
     Dosage: 1000,MG,FOUR TIMES DAILY
     Route: 048
     Dates: start: 20190730
  13. ALGELDRATE;MAGNESIUM HYDROXIDE [Concomitant]
     Dosage: 15,ML,DAILY
     Route: 048
     Dates: start: 20190713, end: 20190713
  14. LACTULOSE. [Concomitant]
     Active Substance: LACTULOSE
     Dosage: 15,ML,DAILY
     Route: 048
     Dates: start: 20190717, end: 20190717
  15. CYCLOPHOSPHAMIDE. [Suspect]
     Active Substance: CYCLOPHOSPHAMIDE
     Indication: BONE MARROW CONDITIONING REGIMEN
     Dosage: 1098.73
     Route: 042
     Dates: start: 20190713, end: 20190713
  16. VALACICLOVIR [Concomitant]
     Active Substance: VALACYCLOVIR HYDROCHLORIDE
     Dosage: 500,MG,TWICE DAILY
     Route: 048
     Dates: start: 20190711
  17. MOVICOLON [Concomitant]
     Active Substance: POLYETHYLENE GLYCOL 3350\POTASSIUM CHLORIDE\SODIUM BICARBONATE\SODIUM CHLORIDE
     Dosage: 1,OTHER,DAILY
     Route: 048
     Dates: start: 20190715, end: 20190723
  18. PARACETAMOL [Concomitant]
     Active Substance: ACETAMINOPHEN
     Dosage: 1000,MG,FOUR TIMES DAILY
     Route: 048
     Dates: start: 20190711
  19. MEROPENEM. [Concomitant]
     Active Substance: MEROPENEM
     Dosage: 1000,MG,THREE TIMES DAILY
     Route: 042
     Dates: start: 20190719, end: 20190722
  20. METOCLOPRAMIDE. [Concomitant]
     Active Substance: METOCLOPRAMIDE
     Dosage: 10,MG,THREE TIMES DAILY
     Route: 048
     Dates: start: 20190722, end: 20190723
  21. LEVETIRACETAM. [Concomitant]
     Active Substance: LEVETIRACETAM
     Dosage: 750,MG,TWICE DAILY
     Route: 042
     Dates: start: 20190723, end: 20190723
  22. COTRIMOXAZOL [Concomitant]
     Active Substance: SULFAMETHOXAZOLE\TRIMETHOPRIM
     Dosage: 480,MG,DAILY
     Route: 048
     Dates: start: 20190711, end: 20190723
  23. LEVETIRACETAM. [Concomitant]
     Active Substance: LEVETIRACETAM
     Dosage: 750,MG,TWICE DAILY
     Route: 048
     Dates: start: 20190717, end: 20190723
  24. LEVETIRACETAM. [Concomitant]
     Active Substance: LEVETIRACETAM
     Dosage: 500,MG,TWICE DAILY
     Route: 048
     Dates: start: 20190802, end: 20190817
  25. FLUDARABINE [Suspect]
     Active Substance: FLUDARABINE PHOSPHATE
     Dosage: 65.42
     Route: 042
     Dates: start: 20190715, end: 20190715
  26. MOVICOLON [Concomitant]
     Active Substance: POLYETHYLENE GLYCOL 3350\POTASSIUM CHLORIDE\SODIUM BICARBONATE\SODIUM CHLORIDE
     Dosage: 1,OTHER,AS NECESSARY
     Route: 048
     Dates: start: 20190711, end: 20190714
  27. METOCLOPRAMIDE. [Concomitant]
     Active Substance: METOCLOPRAMIDE
     Dosage: 10,MG,THREE TIMES DAILY
     Route: 054
     Dates: start: 20190723, end: 20190726
  28. LEVETIRACETAM. [Concomitant]
     Active Substance: LEVETIRACETAM
     Dosage: 750,MG,TWICE DAILY
     Route: 048
     Dates: start: 20190717, end: 20190801
  29. LEVETIRACETAM. [Concomitant]
     Active Substance: LEVETIRACETAM
     Dosage: 250,MG,TWICE DAILY
     Route: 048
     Dates: start: 20190818, end: 20190901
  30. MIDAZOLAM. [Concomitant]
     Active Substance: MIDAZOLAM
     Dosage: 1,OTHER,AS NECESSARY
     Route: 045
     Dates: start: 20190717
  31. CYCLOPHOSPHAMIDE. [Suspect]
     Active Substance: CYCLOPHOSPHAMIDE
     Dosage: 1090.29
     Route: 042
     Dates: start: 20190714, end: 20190715
  32. OXYCODON [Concomitant]
     Active Substance: OXYCODONE
     Dosage: 5,MG,AS NECESSARY
     Route: 048
     Dates: start: 20190711
  33. COTRIMOXAZOL [Concomitant]
     Active Substance: SULFAMETHOXAZOLE\TRIMETHOPRIM
     Dosage: 480,MG,DAILY
     Route: 048
     Dates: start: 20190729
  34. METOCLOPRAMIDE. [Concomitant]
     Active Substance: METOCLOPRAMIDE
     Dosage: 10,MG,DAILY
     Route: 042
     Dates: start: 20190723, end: 20190723
  35. PANTOPRAZOL [PANTOPRAZOLE] [Concomitant]
     Active Substance: PANTOPRAZOLE
     Dosage: 40,MG,DAILY
     Route: 048
     Dates: start: 20190714
  36. LEVETIRACETAM. [Concomitant]
     Active Substance: LEVETIRACETAM
     Dosage: 750,MG,TWICE DAILY
     Route: 048
     Dates: start: 20190726, end: 20190726
  37. FLUDARABINE [Suspect]
     Active Substance: FLUDARABINE PHOSPHATE
     Indication: BONE MARROW CONDITIONING REGIMEN
     Dosage: 65.92
     Route: 042
     Dates: start: 20190713, end: 20190713
  38. VALACICLOVIR [Concomitant]
     Active Substance: VALACYCLOVIR HYDROCHLORIDE
     Dosage: 500,MG,TWICE DAILY
     Route: 048
     Dates: start: 20190711, end: 20190723
  39. PARACETAMOL [Concomitant]
     Active Substance: ACETAMINOPHEN
     Dosage: 1000,MG,FOUR TIMES DAILY
     Route: 048
     Dates: start: 20190711, end: 20190723
  40. PARACETAMOL [Concomitant]
     Active Substance: ACETAMINOPHEN
     Dosage: 1000,MG,FOUR TIMES DAILY
     Route: 054
     Dates: start: 20190723, end: 20190728
  41. ONDANSETRON [Concomitant]
     Active Substance: ONDANSETRON
     Dosage: 4,MG,TWICE DAILY
     Route: 042
     Dates: start: 20190722, end: 20190722
  42. METOCLOPRAMIDE. [Concomitant]
     Active Substance: METOCLOPRAMIDE
     Dosage: 10,MG,DAILY
     Route: 048
     Dates: start: 20190716, end: 20190716
  43. METOCLOPRAMIDE. [Concomitant]
     Active Substance: METOCLOPRAMIDE
     Dosage: 10,MG,AS NECESSARY
     Route: 048
     Dates: start: 20190717, end: 20190722
  44. AXICABTAGENE CILOLEUCEL [Suspect]
     Active Substance: AXICABTAGENE CILOLEUCEL
     Indication: DIFFUSE LARGE B-CELL LYMPHOMA
     Dosage: 68
     Route: 042
     Dates: start: 20190718, end: 20190718
  45. MOVICOLON [Concomitant]
     Active Substance: POLYETHYLENE GLYCOL 3350\POTASSIUM CHLORIDE\SODIUM BICARBONATE\SODIUM CHLORIDE
     Dosage: 1,OTHER,AS NECESSARY
     Route: 048
     Dates: start: 20190711
  46. MOVICOLON [Concomitant]
     Active Substance: POLYETHYLENE GLYCOL 3350\POTASSIUM CHLORIDE\SODIUM BICARBONATE\SODIUM CHLORIDE
     Dosage: 1,OTHER,AS NECESSARY
     Route: 048
     Dates: start: 20190725
  47. ONDANSETRON [Concomitant]
     Active Substance: ONDANSETRON
     Dosage: 4,MG,AS NECESSARY
     Route: 042
     Dates: start: 20190722, end: 20190727
  48. OXYGEN. [Concomitant]
     Active Substance: OXYGEN
     Dosage: 2,L/MIN,CONTINUOUS
     Route: 045
     Dates: start: 20190718, end: 20190719

REACTIONS (3)
  - Encephalopathy [Unknown]
  - Femoral neck fracture [Recovered/Resolved]
  - Progressive multifocal leukoencephalopathy [Fatal]

NARRATIVE: CASE EVENT DATE: 20190722
